FAERS Safety Report 7516102-7 (Version None)
Quarter: 2011Q2

REPORT INFORMATION
  Report Type: 
  Country: None (occurrence: None)
  Receive Date: 20110601
  Receipt Date: 20110526
  Transmission Date: 20111010
  Serious: Yes (Other)
  Sender: FDA-Public Use
  Company Number: BR-ROCHE-768069

PATIENT
  Sex: Female
  Weight: 55 kg

DRUGS (4)
  1. DIAMOX [Concomitant]
     Dosage: DOSE : 0.5 FREQUENCY: UNREPORTED
  2. BONIVA [Suspect]
     Indication: OSTEOPOROSIS
     Route: 048
     Dates: start: 20101201
  3. HYZAAR [Concomitant]
  4. OSCAL [Concomitant]

REACTIONS (2)
  - CORNEAL ABRASION [None]
  - VISION BLURRED [None]
